FAERS Safety Report 15178824 (Version 1)
Quarter: 2018Q3

REPORT INFORMATION
  Report Type: Spontaneous
  Country: GB (occurrence: GB)
  Receive Date: 20180722
  Receipt Date: 20180722
  Transmission Date: 20181010
  Serious: Yes (Other)
  Sender: FDA-Public Use
  Company Number: PHHY2018GB051154

PATIENT
  Age: 13 Year
  Sex: Male

DRUGS (1)
  1. RISPERIDONE. [Suspect]
     Active Substance: RISPERIDONE
     Indication: PRODUCT USED FOR UNKNOWN INDICATION
     Dosage: 0.75 MG, QD
     Route: 048

REACTIONS (2)
  - Liver function test abnormal [Unknown]
  - Muscle injury [Unknown]
